FAERS Safety Report 7922216-X (Version None)
Quarter: 2011Q4

REPORT INFORMATION
  Report Type: 
  Country: None (occurrence: None)
  Receive Date: 20111117
  Receipt Date: 20110204
  Transmission Date: 20120403
  Serious: No
  Sender: FDA-Public Use
  Company Number: US-AMGEN-USASP2011003030

PATIENT
  Age: 43 Year
  Sex: Female

DRUGS (2)
  1. ENBREL [Suspect]
     Indication: PSORIATIC ARTHROPATHY
     Dates: start: 20050101
  2. ENBREL [Suspect]
     Indication: PSORIASIS

REACTIONS (9)
  - FLUID INTAKE REDUCED [None]
  - PSORIATIC ARTHROPATHY [None]
  - INJECTION SITE PAIN [None]
  - FEAR [None]
  - NEEDLE ISSUE [None]
  - DRY SKIN [None]
  - VESSEL PUNCTURE SITE PAIN [None]
  - SCRATCH [None]
  - DEHYDRATION [None]
